FAERS Safety Report 25500903 (Version 3)
Quarter: 2025Q3

REPORT INFORMATION
  Report Type: Report from Study
  Country: EU (occurrence: EU)
  Receive Date: 20250701
  Receipt Date: 20250920
  Transmission Date: 20251020
  Serious: No
  Sender: TRAVERE THERAPEUTICS
  Company Number: EU-BEH-2025208908

PATIENT
  Sex: Male

DRUGS (3)
  1. FILSPARI [Suspect]
     Active Substance: SPARSENTAN
     Indication: IgA nephropathy
     Route: 065
     Dates: start: 20250319, end: 202504
  2. FILSPARI [Suspect]
     Active Substance: SPARSENTAN
     Route: 065
     Dates: start: 20250422, end: 20250523
  3. FILSPARI [Suspect]
     Active Substance: SPARSENTAN
     Route: 065
     Dates: start: 20250708

REACTIONS (2)
  - Dizziness [Recovered/Resolved]
  - Vertigo [Unknown]

NARRATIVE: CASE EVENT DATE: 20250430
